FAERS Safety Report 5472672-4 (Version None)
Quarter: 2007Q4

REPORT INFORMATION
  Report Type: 
  Country: None (occurrence: None)
  Receive Date: 20071001
  Receipt Date: 20061002
  Transmission Date: 20080405
  Serious: Yes (Other)
  Sender: FDA-Public Use
  Company Number: US-ASTRAZENECA-2006UW16896

PATIENT
  Age: 65 Year
  Sex: Female
  Weight: 69.9 kg

DRUGS (4)
  1. ARIMIDEX [Suspect]
     Indication: BREAST CANCER
     Route: 048
     Dates: start: 20041011
  2. LIPITOR [Concomitant]
  3. BENICAR [Concomitant]
  4. CALTRATE D [Concomitant]

REACTIONS (2)
  - OSTEOPENIA [None]
  - VAGINAL HAEMORRHAGE [None]
